FAERS Safety Report 9442271 (Version 1)
Quarter: 2013Q3

REPORT INFORMATION
  Report Type: Spontaneous
  Country: US (occurrence: US)
  Receive Date: 20130806
  Receipt Date: 20130806
  Transmission Date: 20140515
  Serious: Yes (Other)
  Sender: FDA-Public Use
  Company Number: US-BAYER-2013-091787

PATIENT
  Age: 63 Year
  Sex: Female
  Weight: 146 kg

DRUGS (4)
  1. ALEVE CAPLET [Suspect]
     Indication: PAIN
  2. LYRICA [Suspect]
     Indication: FIBROMYALGIA
     Dosage: UNK
     Dates: start: 2007, end: 20130706
  3. METFORMIN [Concomitant]
     Indication: TYPE 2 DIABETES MELLITUS
  4. DIOVAN [Concomitant]
     Indication: HYPERTENSION

REACTIONS (4)
  - Musculoskeletal disorder [Unknown]
  - Unevaluable event [Unknown]
  - Myalgia [Unknown]
  - Drug ineffective [None]
